FAERS Safety Report 19573747 (Version 1)
Quarter: 2021Q3

REPORT INFORMATION
  Report Type: Report from Study
  Country: FR (occurrence: FR)
  Receive Date: 20210717
  Receipt Date: 20210717
  Transmission Date: 20211014
  Serious: Yes (Hospitalization, Other)
  Sender: FDA-Public Use
  Company Number: FR-TAKEDA-2021TUS041499

PATIENT
  Age: 56 Year
  Sex: Female

DRUGS (12)
  1. TEDUGLUTIDE [Suspect]
     Active Substance: TEDUGLUTIDE
     Indication: SHORT-BOWEL SYNDROME
     Dosage: 2.4 MILLIGRAM (0.05MG/KG), QD
     Route: 065
     Dates: start: 20170529, end: 20180524
  2. TEDUGLUTIDE [Suspect]
     Active Substance: TEDUGLUTIDE
     Indication: SHORT-BOWEL SYNDROME
     Dosage: 2.4 MILLIGRAM (0.05MG/KG), QD
     Route: 065
     Dates: start: 20170529, end: 20180524
  3. TEDUGLUTIDE [Suspect]
     Active Substance: TEDUGLUTIDE
     Dosage: 2.4 MILLIGRAM (0.05MG/KG), QD
     Route: 065
     Dates: start: 20180607, end: 20190425
  4. VITAMIN B12 [Concomitant]
     Active Substance: CYANOCOBALAMIN
     Indication: SUPPLEMENTATION THERAPY
     Dosage: 1.0 MILLIGRAM, ONE DOSE
     Route: 058
     Dates: start: 201806, end: 201806
  5. TEDUGLUTIDE [Suspect]
     Active Substance: TEDUGLUTIDE
     Dosage: 2.4 MILLIGRAM (0.05MG/KG), QD
     Route: 065
     Dates: start: 20180607, end: 20190425
  6. TEDUGLUTIDE [Suspect]
     Active Substance: TEDUGLUTIDE
     Indication: SHORT-BOWEL SYNDROME
     Dosage: 2.4 MILLIGRAM (0.05MG/KG), QD
     Route: 065
     Dates: start: 20170529, end: 20180524
  7. TEDUGLUTIDE [Suspect]
     Active Substance: TEDUGLUTIDE
     Dosage: 2.4 MILLIGRAM (0.05MG/KG), QD
     Route: 065
     Dates: start: 20180607, end: 20190425
  8. TEDUGLUTIDE [Suspect]
     Active Substance: TEDUGLUTIDE
     Dosage: 2.4 MILLIGRAM (0.05MG/KG), QD
     Route: 065
     Dates: start: 20180607, end: 20190425
  9. TEDUGLUTIDE [Suspect]
     Active Substance: TEDUGLUTIDE
     Indication: SHORT-BOWEL SYNDROME
     Dosage: 2.4 MILLIGRAM (0.05MG/KG), QD
     Route: 065
     Dates: start: 20170529, end: 20180524
  10. VERSATIS [Concomitant]
     Active Substance: LIDOCAINE
     Indication: CARPAL TUNNEL SYNDROME
     Dosage: 999 UNK,
     Route: 061
     Dates: start: 201804
  11. VITAMIN D3 [Concomitant]
     Active Substance: CHOLECALCIFEROL
     Indication: SUPPLEMENTATION THERAPY
     Dosage: 200000 UNITS, ONE DOSE
     Route: 058
     Dates: start: 201806, end: 201806
  12. ACLASTA [Concomitant]
     Active Substance: ZOLEDRONIC ACID
     Indication: OSTEOPOROSIS
     Dosage: 5 MILLIGRAM, ONE DOSE
     Route: 042
     Dates: start: 20180528, end: 20180528

REACTIONS (2)
  - Anaemia [Recovered/Resolved]
  - Glaucoma [Not Recovered/Not Resolved]

NARRATIVE: CASE EVENT DATE: 20170628
